FAERS Safety Report 12467753 (Version 1)
Quarter: 2016Q2

REPORT INFORMATION
  Report Type: Spontaneous
  Country: US (occurrence: None)
  Receive Date: 20160614
  Receipt Date: 20160614
  Transmission Date: 20160815
  Serious: No
  Sender: FDA-Public Use
  Company Number: None

PATIENT
  Age: 66 Year
  Sex: Male

DRUGS (1)
  1. ACTEMRA [Suspect]
     Active Substance: TOCILIZUMAB
     Indication: ARTHRALGIA
     Dosage: ONE SYRINGE PER WEEK SUBCUTANEOUSLY
     Route: 058
     Dates: start: 20140825

REACTIONS (1)
  - Syringe issue [None]

NARRATIVE: CASE EVENT DATE: 20160520
